FAERS Safety Report 12387945 (Version 1)
Quarter: 2016Q2

REPORT INFORMATION
  Report Type: Spontaneous
  Country: US (occurrence: US)
  Receive Date: 20160520
  Receipt Date: 20160520
  Transmission Date: 20160815
  Serious: Yes (Other)
  Sender: FDA-Public Use
  Company Number: US-AMGEN-USASP2016062216

PATIENT
  Age: 68 Year
  Sex: Female

DRUGS (1)
  1. NEULASTA [Suspect]
     Active Substance: PEGFILGRASTIM
     Indication: PRODUCT USED FOR UNKNOWN INDICATION
     Dosage: UNK
     Route: 065

REACTIONS (8)
  - Dyspnoea [Unknown]
  - Feeling hot [Unknown]
  - Pallor [Unknown]
  - Application site bruise [Unknown]
  - Unresponsive to stimuli [Unknown]
  - Pain in extremity [Unknown]
  - Seizure [Unknown]
  - Application site haemorrhage [Recovered/Resolved]
